FAERS Safety Report 5572852-3 (Version None)
Quarter: 2007Q4

REPORT INFORMATION
  Report Type: 
  Country: None (occurrence: None)
  Receive Date: 20071223
  Receipt Date: 20071219
  Transmission Date: 20080405
  Serious: Yes (Other)
  Sender: FDA-Public Use
  Company Number: PHBS2007NL21170

PATIENT
  Sex: Male

DRUGS (4)
  1. ZOMETA [Suspect]
     Dates: start: 20051201
  2. CASODEX [Concomitant]
     Dosage: 50 MG/DAY
  3. ZOLADEX [Concomitant]
  4. DURAGESIC-100 [Concomitant]
     Dosage: 12 MCG/HOUR

REACTIONS (1)
  - OSTEONECROSIS [None]
